FAERS Safety Report 26211184 (Version 1)
Quarter: 2025Q4

REPORT INFORMATION
  Report Type: Spontaneous
  Country: US (occurrence: US)
  Receive Date: 20251230
  Receipt Date: 20251230
  Transmission Date: 20260118
  Serious: Yes (Other)
  Sender: COOPERSURGICAL
  Company Number: US-COOPERSURGICAL, INC.-2025CPS008309

PATIENT
  Age: 64 Year
  Sex: Female

DRUGS (1)
  1. PARAGARD T 380A [Suspect]
     Active Substance: COPPER
     Dosage: 30 YEARS
     Route: 015
     Dates: start: 1995

REACTIONS (4)
  - Cervix inflammation [Unknown]
  - Papilloma viral infection [Unknown]
  - Device use issue [Unknown]
  - Off label use [Unknown]
